FAERS Safety Report 4899757-5 (Version None)
Quarter: 2006Q1

REPORT INFORMATION
  Report Type: 
  Country: None (occurrence: None)
  Receive Date: 20060131
  Receipt Date: 20060117
  Transmission Date: 20060701
  Serious: Yes (Other)
  Sender: FDA-Public Use
  Company Number: 2006S1000481

PATIENT
  Age: 68 Year
  Sex: Male

DRUGS (7)
  1. FENTANYL TRANSDERMAL SYSTEM [Suspect]
     Indication: ARTHRALGIA
     Dosage: 25 UG/HR;Q3D;TRANS
     Route: 062
     Dates: start: 20050801, end: 20060112
  2. FENTANYL TRANSDERMAL SYSTEM [Suspect]
     Indication: CARTILAGE INJURY
     Dosage: 25 UG/HR;Q3D;TRANS
     Route: 062
     Dates: start: 20050801, end: 20060112
  3. FENTANYL TRANSDERMAL SYSTEM [Suspect]
     Indication: KNEE ARTHROPLASTY
     Dosage: 25 UG/HR;Q3D;TRANS
     Route: 062
     Dates: start: 20050801, end: 20060112
  4. FENTANYL TRANSDERMAL SYSTEM [Suspect]
     Indication: ARTHRALGIA
     Dosage: 100 UG/HR;Q3D;TRANS
     Route: 062
     Dates: start: 20050801, end: 20060112
  5. FENTANYL TRANSDERMAL SYSTEM [Suspect]
     Indication: CARTILAGE INJURY
     Dosage: 100 UG/HR;Q3D;TRANS
     Route: 062
     Dates: start: 20050801, end: 20060112
  6. FENTANYL TRANSDERMAL SYSTEM [Suspect]
     Indication: KNEE ARTHROPLASTY
     Dosage: 100 UG/HR;Q3D;TRANS
     Route: 062
     Dates: start: 20050801, end: 20060112
  7. RABEPRAZOLE SODIUM [Concomitant]

REACTIONS (5)
  - ANOREXIA [None]
  - HYPERHIDROSIS [None]
  - INSOMNIA [None]
  - MUSCLE SPASMS [None]
  - TREATMENT NONCOMPLIANCE [None]
